FAERS Safety Report 5107559-X (Version None)
Quarter: 2006Q3

REPORT INFORMATION
  Report Type: 
  Country: None (occurrence: None)
  Receive Date: 20060731
  Receipt Date: 20060407
  Transmission Date: 20061208
  Serious: No
  Sender: FDA-Public Use
  Company Number: 2006PV011721

PATIENT
  Age: 65 Year
  Sex: Male
  Weight: 91.6266 kg

DRUGS (3)
  1. BYETTA [Suspect]
     Indication: DIABETES MELLITUS NON-INSULIN-DEPENDENT
     Dosage: 5 MCG, BID; SC
     Route: 058
     Dates: start: 20060327, end: 20060405
  2. MAALOX FAST BLOCKER [Suspect]
     Indication: DRUG USE FOR UNKNOWN INDICATION
     Dosage: 1 TSP;
     Dates: start: 20060407
  3. NEXIUM [Concomitant]

REACTIONS (2)
  - ABDOMINAL PAIN UPPER [None]
  - FAECES DISCOLOURED [None]
